FAERS Safety Report 21269795 (Version 1)
Quarter: 2022Q3

REPORT INFORMATION
  Report Type: Other
  Country: None (occurrence: CN)
  Receive Date: 20220830
  Receipt Date: 20220830
  Transmission Date: 20221027
  Serious: Yes (Hospitalization, Other)
  Sender: FDA-Public Use
  Company Number: CN-Renata Limited-2132376

PATIENT
  Age: 69 Year
  Sex: Female

DRUGS (7)
  1. METOPROLOL TARTRATE [Suspect]
     Active Substance: METOPROLOL TARTRATE
     Indication: Tachycardia
     Route: 065
     Dates: start: 20201031
  2. DACOMITINIB [Interacting]
     Active Substance: DACOMITINIB
     Route: 048
     Dates: start: 20200929
  3. LORATADINE [Interacting]
     Active Substance: LORATADINE
     Route: 065
     Dates: start: 20201025
  4. S-adenosyl methionine [Concomitant]
     Route: 048
  5. ACETYLCYSTEINE [Concomitant]
     Active Substance: ACETYLCYSTEINE
     Route: 048
  6. URSODIOL [Concomitant]
     Active Substance: URSODIOL
     Route: 048
  7. ADEMETIONINE [Concomitant]
     Active Substance: ADEMETIONINE
     Route: 065

REACTIONS (3)
  - Drug-induced liver injury [Recovered/Resolved]
  - Cholestasis [Recovered/Resolved]
  - Drug interaction [Recovered/Resolved]
